FAERS Safety Report 7244184-9 (Version None)
Quarter: 2011Q1

REPORT INFORMATION
  Report Type: 
  Country: None (occurrence: None)
  Receive Date: 20110125
  Receipt Date: 20110119
  Transmission Date: 20110831
  Serious: Yes (Other)
  Sender: FDA-Public Use
  Company Number: US-PFIZER INC-2011013839

PATIENT
  Sex: Female
  Weight: 58.503 kg

DRUGS (9)
  1. VITAMIN B6 [Concomitant]
     Dosage: UNK
  2. MAGNESIUM [Concomitant]
  3. ZINC [Concomitant]
  4. LIPITOR [Suspect]
     Indication: BLOOD CHOLESTEROL INCREASED
     Dosage: 80 MG, 1X/DAY
     Route: 048
     Dates: start: 20080101
  5. ACETYLSALICYLIC ACID [Concomitant]
     Indication: CEREBROVASCULAR ACCIDENT PROPHYLAXIS
     Dosage: 81 MG, 1X/DAY
     Route: 048
  6. VITAMIN D [Concomitant]
     Dosage: 2000 IU, 1X/DAY
     Route: 048
  7. FISH OIL AND OMEGA THREE FATTY ACIDS [Concomitant]
     Dosage: 1000/300 MG
     Route: 048
  8. COENZYME Q10 [Concomitant]
     Dosage: 200 MG, 1X/DAY
     Route: 048
  9. FOSAMAX [Concomitant]
     Indication: OSTEOPOROSIS PROPHYLAXIS
     Dosage: 70 MG, WEEKLY
     Route: 048

REACTIONS (2)
  - ORAL HERPES [None]
  - HEPATIC ENZYME INCREASED [None]
